FAERS Safety Report 26066413 (Version 1)
Quarter: 2025Q4

REPORT INFORMATION
  Report Type: Spontaneous
  Country: US (occurrence: US)
  Receive Date: 20251119
  Receipt Date: 20251119
  Transmission Date: 20260118
  Serious: No
  Sender: NOVO NORDISK
  Company Number: US-NOVOPROD-1336996

PATIENT
  Sex: Female

DRUGS (1)
  1. NOVOLOG [Suspect]
     Active Substance: INSULIN ASPART
     Indication: Product used for unknown indication
     Dosage: 4 U, TID
     Route: 058

REACTIONS (3)
  - Unevaluable event [Unknown]
  - Blood glucose increased [Unknown]
  - Device malfunction [Not Recovered/Not Resolved]
